FAERS Safety Report 5511503-0 (Version None)
Quarter: 2007Q4

REPORT INFORMATION
  Report Type: 
  Country: None (occurrence: None)
  Receive Date: 20071109
  Receipt Date: 20070214
  Transmission Date: 20080405
  Serious: No
  Sender: FDA-Public Use
  Company Number: B0446140A

PATIENT

DRUGS (1)
  1. AVANDAMET [Suspect]
     Route: 048

REACTIONS (2)
  - DIZZINESS [None]
  - NAUSEA [None]
